FAERS Safety Report 7459152-1 (Version None)
Quarter: 2011Q2

REPORT INFORMATION
  Report Type: 
  Country: None (occurrence: None)
  Receive Date: 20110505
  Receipt Date: 20110429
  Transmission Date: 20111010
  Serious: No
  Sender: FDA-Public Use
  Company Number: US-BIOGENIDEC-2011BI016265

PATIENT
  Age: 47 Year
  Sex: Male

DRUGS (1)
  1. TYSABRI [Suspect]
     Indication: MULTIPLE SCLEROSIS
     Route: 042
     Dates: start: 20110201

REACTIONS (10)
  - DIZZINESS [None]
  - RHINORRHOEA [None]
  - ASTHENIA [None]
  - CONSTIPATION [None]
  - CHILLS [None]
  - PAIN IN EXTREMITY [None]
  - FATIGUE [None]
  - DYSPNOEA [None]
  - JOINT STIFFNESS [None]
  - INSOMNIA [None]
